FAERS Safety Report 7602274-2 (Version None)
Quarter: 2011Q3

REPORT INFORMATION
  Report Type: 
  Country: None (occurrence: None)
  Receive Date: 20110711
  Receipt Date: 20110706
  Transmission Date: 20111222
  Serious: Yes (Death, Life-Threatening, Hospitalization, Other)
  Sender: FDA-Public Use
  Company Number: US-ASTRAZENECA-2010SE53907

PATIENT
  Age: 39 Year
  Sex: Female

DRUGS (15)
  1. SYMBICORT [Suspect]
     Dosage: TWO PUFFS IN MORNING AND TWO PUFFS IN EVENING
     Route: 055
     Dates: start: 20100801, end: 20100901
  2. SINGULAIR [Concomitant]
  3. VIMOVO [Suspect]
     Route: 048
  4. SEROQUEL [Suspect]
     Indication: DEPRESSION
     Route: 048
     Dates: start: 20100901, end: 20101001
  5. ADVAIR DISKUS 100/50 [Concomitant]
     Route: 055
  6. SEROQUEL [Suspect]
     Indication: BIPOLAR DISORDER
     Route: 048
     Dates: start: 20100901, end: 20101001
  7. SEROQUEL [Suspect]
     Route: 048
  8. ALBUTEROL SULFATE AUTOHALER [Concomitant]
  9. PROAIR HFA [Concomitant]
  10. SEROQUEL [Suspect]
     Route: 048
     Dates: start: 20101001
  11. SEROQUEL [Suspect]
     Route: 048
  12. NEXIUM [Suspect]
     Route: 048
  13. CRESTOR [Suspect]
     Route: 048
  14. SEROQUEL [Suspect]
     Route: 048
     Dates: start: 20101001
  15. NASONEX [Concomitant]
     Indication: HYPERSENSITIVITY
     Dosage: AS REQUIRED

REACTIONS (10)
  - CARDIAC FAILURE [None]
  - INTESTINAL OBSTRUCTION [None]
  - DYSPNOEA [None]
  - DRUG ADMINISTRATION ERROR [None]
  - GASTROINTESTINAL SURGERY [None]
  - CARDIAC ARREST [None]
  - APHONIA [None]
  - ORGAN FAILURE [None]
  - MANIA [None]
  - DRUG INEFFECTIVE [None]
